FAERS Safety Report 23454427 (Version 1)
Quarter: 2024Q1

REPORT INFORMATION
  Report Type: Spontaneous
  Country: US (occurrence: US)
  Receive Date: 20240130
  Receipt Date: 20240130
  Transmission Date: 20240410
  Serious: Yes (Hospitalization)
  Sender: FDA-Public Use
  Company Number: US-TEVA-VS-3147678

PATIENT
  Age: 8 Decade
  Sex: Male

DRUGS (3)
  1. CALCITRIOL [Suspect]
     Active Substance: CALCITRIOL
     Indication: Hungry bone syndrome
     Route: 065
  2. VITAMIN D [Suspect]
     Active Substance: VITAMIN D NOS
     Indication: Prophylaxis
     Route: 048
  3. CALCIUM [Suspect]
     Active Substance: CALCIUM
     Indication: Hungry bone syndrome
     Route: 048

REACTIONS (3)
  - Drug ineffective [Unknown]
  - Acute kidney injury [Recovering/Resolving]
  - Hypercalcaemia [Recovered/Resolved]
